FAERS Safety Report 5977147-1 (Version None)
Quarter: 2008Q4

REPORT INFORMATION
  Report Type: 
  Country: None (occurrence: None)
  Receive Date: 20081203
  Receipt Date: 20081128
  Transmission Date: 20090506
  Serious: Yes (Other)
  Sender: FDA-Public Use
  Company Number: NO-BRISTOL-MYERS SQUIBB COMPANY-14422927

PATIENT
  Age: 43 Year
  Sex: Male

DRUGS (2)
  1. PRAVASTATIN SODIUM [Suspect]
  2. ATORVASTATIN CALCIUM [Suspect]
     Dosage: 10 MG/DAY TO 20 MG/DAY TO 40 MG/DAY

REACTIONS (3)
  - DIPLOPIA [None]
  - EYELID PTOSIS [None]
  - MYASTHENIA GRAVIS [None]
